FAERS Safety Report 4586158-2 (Version None)
Quarter: 2005Q1

REPORT INFORMATION
  Report Type: 
  Country: None (occurrence: None)
  Receive Date: 20050125
  Receipt Date: 20041018
  Transmission Date: 20050727
  Serious: No
  Sender: FDA-Public Use
  Company Number: USA041081523

PATIENT
  Age: 76 Year
  Sex: Female

DRUGS (4)
  1. FORTEO [Suspect]
     Dates: start: 20030201
  2. VIACTIV [Concomitant]
  3. TUMS (CALCIUM CARBONATE) [Concomitant]
  4. ENSURE [Concomitant]

REACTIONS (5)
  - ARTHRALGIA [None]
  - HYPERHIDROSIS [None]
  - INSOMNIA [None]
  - PAIN IN EXTREMITY [None]
  - THINKING ABNORMAL [None]
